FAERS Safety Report 4597442-0 (Version None)
Quarter: 2005Q1

REPORT INFORMATION
  Report Type: 
  Country: None (occurrence: None)
  Receive Date: 20050303
  Receipt Date: 20050218
  Transmission Date: 20050727
  Serious: Yes (Other)
  Sender: FDA-Public Use
  Company Number: US-GLAXOSMITHKLINE-A0546444A

PATIENT
  Age: 57 Year
  Sex: Male
  Weight: 90.9 kg

DRUGS (2)
  1. TUMS [Suspect]
     Dosage: 2TAB SINGLE DOSE
     Route: 048
     Dates: start: 20050211, end: 20050211
  2. RED BULL [Suspect]
     Route: 048

REACTIONS (7)
  - ANAPHYLACTOID REACTION [None]
  - AURICULAR SWELLING [None]
  - BLOOD PRESSURE INCREASED [None]
  - OCULAR HYPERAEMIA [None]
  - OEDEMA MOUTH [None]
  - SWELLING FACE [None]
  - URTICARIA [None]
